FAERS Safety Report 9452226 (Version 2)
Quarter: 2013Q4

REPORT INFORMATION
  Report Type: Report from Study
  Country: US (occurrence: US)
  Receive Date: 20130812
  Receipt Date: 20131204
  Transmission Date: 20140711
  Serious: Yes (Hospitalization)
  Sender: FDA-Public Use
  Company Number: US-BRISTOL-MYERS SQUIBB COMPANY-19174846

PATIENT
  Age: 49 Year
  Sex: Female
  Weight: 75.4 kg

DRUGS (27)
  1. PACLITAXEL [Suspect]
     Indication: NEOPLASM
     Dosage: LAST DOSE:05/JUN/2012,
     Route: 042
  2. CARBOPLATIN [Suspect]
     Indication: NEOPLASM
     Dosage: LAST DOSE: 05/JUN/2012,
     Route: 042
  3. BEVACIZUMAB [Suspect]
     Indication: NEOPLASM
     Dosage: LAST DOSE:05/JUN/2012
     Route: 042
  4. PARACETAMOL [Concomitant]
     Indication: PAIN
     Route: 048
     Dates: start: 20120615
  5. ZOFRAN [Concomitant]
     Route: 048
     Dates: start: 20120606, end: 20120626
  6. CLARITIN [Concomitant]
     Indication: SEASONAL ALLERGY
     Route: 048
     Dates: start: 20120524, end: 20120601
  7. ONDANSETRON [Concomitant]
     Route: 048
     Dates: start: 20120525, end: 20120606
  8. DEXAMETHASONE [Concomitant]
     Route: 048
     Dates: start: 20120525, end: 20120615
  9. FENTANYL [Concomitant]
     Indication: PAIN
     Route: 042
     Dates: start: 20120626, end: 20120626
  10. FAMOTIDINE [Concomitant]
     Route: 042
     Dates: start: 20120605, end: 20120619
  11. BENADRYL [Concomitant]
     Route: 042
     Dates: start: 20120605, end: 20120619
  12. LOMOTIL [Concomitant]
     Indication: DIARRHOEA
     Route: 048
     Dates: start: 20120605
  13. PRILOSEC [Concomitant]
     Indication: DYSPEPSIA
     Route: 048
     Dates: start: 20120611
  14. PREDNISOLONE [Concomitant]
     Indication: RASH
     Dosage: 18JUN12.16JUN12-ONGOING.
     Route: 048
     Dates: start: 20120618
  15. MAGNESIUM SULFATE [Concomitant]
     Route: 042
     Dates: start: 20120618, end: 20120618
  16. POTASSIUM CHLORIDE [Concomitant]
     Dosage: 1DF=20 UNITS NOS.
     Route: 048
     Dates: start: 20120619, end: 20120619
  17. VITAMIN B12 [Concomitant]
     Route: 030
     Dates: start: 20120626, end: 20120626
  18. FOLIC ACID [Concomitant]
     Route: 048
     Dates: start: 20120626
  19. MOUTHWASH [Concomitant]
     Indication: MUCOSAL INFLAMMATION
     Route: 048
     Dates: start: 20120611
  20. PEGFILGRASTIM [Concomitant]
     Indication: PYREXIA
     Route: 058
     Dates: start: 20120618, end: 20120618
  21. GABAPENTIN [Concomitant]
     Indication: NEUROPATHY PERIPHERAL
     Route: 048
     Dates: start: 20120618
  22. LIDOCAINE [Concomitant]
     Indication: MUCOSAL INFLAMMATION
     Dosage: 1DF=1 UNIT NOS.
     Route: 061
     Dates: start: 20120618
  23. FAMOTIDINE [Concomitant]
     Route: 042
     Dates: start: 20120605, end: 20120618
  24. EMLA [Concomitant]
     Indication: RASH
     Dosage: 1DF=2.5%.
     Route: 061
     Dates: start: 20120616
  25. EMEND [Concomitant]
     Route: 048
     Dates: start: 20120525
  26. APREPITANT [Concomitant]
     Dosage: CAPS.
     Route: 048
     Dates: start: 20120525, end: 20120606
  27. MORPHINE [Concomitant]
     Indication: ARTHRALGIA
     Route: 048
     Dates: start: 20120611

REACTIONS (1)
  - Pyrexia [Not Recovered/Not Resolved]
